FAERS Safety Report 21085810 (Version 2)
Quarter: 2022Q3

REPORT INFORMATION
  Report Type: Spontaneous
  Country: SE (occurrence: SE)
  Receive Date: 20220715
  Receipt Date: 20220721
  Transmission Date: 20221027
  Serious: Yes (Hospitalization, Disabling)
  Sender: FDA-Public Use
  Company Number: SE-MPA-2022-016812

PATIENT
  Age: 38 Year
  Sex: Male
  Weight: 120 kg

DRUGS (3)
  1. SERTRALINE [Suspect]
     Active Substance: SERTRALINE HYDROCHLORIDE
     Indication: Depression
     Dosage: 200 MILLIGRAM, ONCE A DAY
     Route: 048
     Dates: start: 20200130
  2. ACETAMINOPHEN [Concomitant]
     Active Substance: ACETAMINOPHEN
     Indication: Product used for unknown indication
     Dosage: UNK
     Route: 048
     Dates: start: 20200102
  3. PARAFLEX [Concomitant]
     Active Substance: CHLORZOXAZONE
     Indication: Product used for unknown indication
     Dosage: UNK
     Route: 048
     Dates: start: 20200102

REACTIONS (5)
  - Blood testosterone decreased [Not Recovered/Not Resolved]
  - Blood prolactin increased [Not Recovered/Not Resolved]
  - Galactorrhoea [Not Recovered/Not Resolved]
  - Gynaecomastia [Not Recovered/Not Resolved]
  - Musculoskeletal stiffness [Not Recovered/Not Resolved]

NARRATIVE: CASE EVENT DATE: 20210401
